FAERS Safety Report 16872780 (Version 1)
Quarter: 2019Q4

REPORT INFORMATION
  Report Type: Spontaneous
  Country: CN (occurrence: CN)
  Receive Date: 20191001
  Receipt Date: 20191001
  Transmission Date: 20200122
  Serious: Yes (Other)
  Sender: FDA-Public Use
  Company Number: CN-BAYER-2019-176215

PATIENT
  Age: 25 Year
  Sex: Female

DRUGS (3)
  1. CLARITYNE 10 MG [Suspect]
     Active Substance: LORATADINE
     Indication: DERMATITIS ALLERGIC
     Dosage: 1 DF, ONCE
     Route: 048
     Dates: start: 20190904, end: 20190904
  2. CLARITYNE 10 MG [Suspect]
     Active Substance: LORATADINE
     Indication: DERMATITIS ALLERGIC
     Dosage: 1 DF, ONCE
     Route: 048
     Dates: start: 20190831, end: 20190831
  3. CLARITYNE 10 MG [Suspect]
     Active Substance: LORATADINE
     Indication: DERMATITIS ALLERGIC
     Dosage: 1 DF, ONCE
     Route: 048
     Dates: start: 20190919, end: 20190919

REACTIONS (3)
  - Inappropriate schedule of product administration [None]
  - Haemorrhage in pregnancy [None]
  - Maternal exposure during pregnancy [None]

NARRATIVE: CASE EVENT DATE: 20190831
